FAERS Safety Report 6001701-4 (Version None)
Quarter: 2008Q4

REPORT INFORMATION
  Report Type: 
  Country: None (occurrence: None)
  Receive Date: 20081215
  Receipt Date: 20080228
  Transmission Date: 20090506
  Serious: No
  Sender: FDA-Public Use
  Company Number: US-B.I. PHARMACEUTICALS,INC./RIDGEFIELD-2008-BP-03009BP

PATIENT
  Age: 60 Year
  Sex: Male

DRUGS (5)
  1. SPIRIVA [Suspect]
     Indication: CHRONIC OBSTRUCTIVE PULMONARY DISEASE
     Dosage: 18MCG
     Route: 055
     Dates: start: 20070101
  2. FORADIL [Concomitant]
  3. ASMANEX TWISTHALER [Concomitant]
  4. ALLOPURINOL [Concomitant]
  5. RANITIDINE [Concomitant]
     Dosage: 150MG

REACTIONS (2)
  - DRY MOUTH [None]
  - VISION BLURRED [None]
